FAERS Safety Report 20689160 (Version 2)
Quarter: 2022Q2

REPORT INFORMATION
  Report Type: Spontaneous
  Country: US (occurrence: US)
  Receive Date: 20220408
  Receipt Date: 20220525
  Transmission Date: 20220721
  Serious: Yes (Death, Other)
  Sender: FDA-Public Use
  Company Number: US-BAUSCH-BL-2022-008627

PATIENT
  Age: 82 Year
  Sex: Male

DRUGS (1)
  1. XIFAXAN [Suspect]
     Active Substance: RIFAXIMIN
     Indication: Hepatic encephalopathy
     Route: 048
     Dates: end: 202202

REACTIONS (3)
  - Hepatic failure [Fatal]
  - Terminal state [Unknown]
  - Hospice care [Unknown]

NARRATIVE: CASE EVENT DATE: 20220201
